FAERS Safety Report 11536241 (Version 3)
Quarter: 2015Q4

REPORT INFORMATION
  Report Type: Spontaneous
  Country: US (occurrence: US)
  Receive Date: 20150922
  Receipt Date: 20151205
  Transmission Date: 20160304
  Serious: No
  Sender: FDA-Public Use
  Company Number: US-GLAXOSMITHKLINE-US2015GSK134704

PATIENT
  Age: 60 Year
  Sex: Female

DRUGS (3)
  1. ADVAIR DISKUS [Suspect]
     Active Substance: FLUTICASONE PROPIONATE\SALMETEROL XINAFOATE
     Indication: CHRONIC OBSTRUCTIVE PULMONARY DISEASE
     Dosage: UNK
     Dates: start: 2008
  2. COMBIVENT [Concomitant]
     Active Substance: ALBUTEROL SULFATE\IPRATROPIUM BROMIDE
  3. ADVAIR DISKUS [Suspect]
     Active Substance: FLUTICASONE PROPIONATE\SALMETEROL XINAFOATE
     Dosage: UNK
     Dates: start: 20090323

REACTIONS (13)
  - Drug dose omission [Unknown]
  - Asthenia [Unknown]
  - General physical health deterioration [Unknown]
  - Blood glucose increased [Unknown]
  - Ill-defined disorder [Unknown]
  - Pain in extremity [Unknown]
  - Dyspnoea [Unknown]
  - Feeling abnormal [Unknown]
  - Sleep apnoea syndrome [Unknown]
  - Fatigue [Unknown]
  - Malaise [Unknown]
  - Impaired work ability [Unknown]
  - Gait disturbance [Unknown]

NARRATIVE: CASE EVENT DATE: 201508
